FAERS Safety Report 12504360 (Version 2)
Quarter: 2016Q3

REPORT INFORMATION
  Report Type: Spontaneous
  Country: DE (occurrence: DE)
  Receive Date: 20160628
  Receipt Date: 20160805
  Transmission Date: 20161109
  Serious: Yes (Other)
  Sender: FDA-Public Use
  Company Number: DE-AMGEN-DEUSP2016082462

PATIENT
  Age: 53 Year
  Sex: Female

DRUGS (1)
  1. ENBREL [Suspect]
     Active Substance: ETANERCEPT
     Indication: RHEUMATOID ARTHRITIS
     Dosage: 50 MG, CYCLIC EVERY 8-9 DAYS
     Route: 065
     Dates: start: 201605

REACTIONS (3)
  - Rheumatoid arthritis [Recovered/Resolved]
  - Intentional product misuse [Unknown]
  - Condition aggravated [Recovered/Resolved]
